FAERS Safety Report 4574889-X (Version None)
Quarter: 2005Q1

REPORT INFORMATION
  Report Type: 
  Country: None (occurrence: None)
  Receive Date: 20050208
  Receipt Date: 20040728
  Transmission Date: 20050727
  Serious: No
  Sender: FDA-Public Use
  Company Number: US-GLAXOSMITHKLINE-A0520083A

PATIENT
  Age: 55 Year
  Sex: Female

DRUGS (5)
  1. PAXIL CR [Suspect]
     Indication: DEPRESSION
     Dosage: 12.5MG PER DAY
     Route: 048
     Dates: start: 20040617
  2. ATENOLOL [Concomitant]
  3. ARIMIDEX [Concomitant]
  4. WARFARIN SODIUM [Concomitant]
  5. NEXIUM [Concomitant]

REACTIONS (1)
  - DIARRHOEA [None]
